FAERS Safety Report 26161066 (Version 1)
Quarter: 2025Q4

REPORT INFORMATION
  Report Type: Report from Study
  Country: US (occurrence: US)
  Receive Date: 20251216
  Receipt Date: 20251216
  Transmission Date: 20260118
  Serious: Yes (Other)
  Sender: TAKEDA
  Company Number: US-TAKEDA-US201735058

PATIENT
  Age: 30 Year
  Sex: Male
  Weight: 141 kg

DRUGS (11)
  1. IDURSULFASE [Suspect]
     Active Substance: IDURSULFASE
     Indication: Mucopolysaccharidosis II
     Dosage: UNK UNK, 1/WEEK
     Dates: start: 2012
  2. IDURSULFASE [Suspect]
     Active Substance: IDURSULFASE
     Dosage: 66 MILLIGRAM, 1/WEEK
     Dates: start: 2014
  3. IDURSULFASE [Suspect]
     Active Substance: IDURSULFASE
     Dosage: 60 MILLIGRAM, 1/WEEK
     Dates: start: 201412
  4. IDURSULFASE [Suspect]
     Active Substance: IDURSULFASE
     Dosage: 66 MILLIGRAM, 1/WEEK
     Dates: start: 201502
  5. IDURSULFASE [Suspect]
     Active Substance: IDURSULFASE
     Dosage: 66 MILLIGRAM, 1/WEEK
  6. IDURSULFASE [Suspect]
     Active Substance: IDURSULFASE
     Dosage: UNK UNK, 1/WEEK
     Dates: start: 2020
  7. CARVEDILOL [Concomitant]
     Active Substance: CARVEDILOL
     Indication: Cardiac failure
     Dosage: 12.5 MILLIGRAM, BID
     Dates: start: 20250417
  8. JARDIANCE [Concomitant]
     Active Substance: EMPAGLIFLOZIN
     Indication: Cardiomyopathy
     Dosage: 10 MILLIGRAM, QD
     Dates: start: 20250417
  9. ENTRESTO [Concomitant]
     Active Substance: SACUBITRIL\VALSARTAN
     Indication: Cardiomyopathy
     Dosage: UNK UNK, BID
     Dates: start: 20250808
  10. ENTRESTO [Concomitant]
     Active Substance: SACUBITRIL\VALSARTAN
     Indication: Cardiac failure
     Dosage: UNK UNK, BID
  11. MOUNJARO [Concomitant]
     Active Substance: TIRZEPATIDE
     Indication: Weight decreased
     Dosage: UNK UNK, 1/WEEK
     Dates: start: 20250210, end: 20250603

REACTIONS (9)
  - Pain in extremity [Recovering/Resolving]
  - Inappropriate schedule of product administration [Recovered/Resolved]
  - Product dose omission issue [Recovered/Resolved]
  - Malaise [Recovered/Resolved]
  - COVID-19 [Recovered/Resolved]
  - Oropharyngeal pain [Recovered/Resolved]
  - Gastroenteritis viral [Recovered/Resolved]
  - Illness [Recovered/Resolved]
  - Pyrexia [Recovered/Resolved]

NARRATIVE: CASE EVENT DATE: 20171214
